FAERS Safety Report 9495195 (Version 1)
Quarter: 2013Q3

REPORT INFORMATION
  Report Type: Spontaneous
  Country: IT (occurrence: None)
  Receive Date: 20130828
  Receipt Date: 20130828
  Transmission Date: 20140515
  Serious: No
  Sender: FDA-Public Use
  Company Number: 2013P1018568

PATIENT
  Age: 75 Year
  Sex: Male

DRUGS (2)
  1. ISOSORBIDE DINITRATE [Suspect]
     Dosage: 5MG;XL;SL
  2. RADIOISOTOPE [Concomitant]

REACTIONS (3)
  - Blood pressure decreased [None]
  - Heart rate increased [None]
  - Myocardial ischaemia [None]
